FAERS Safety Report 5652005-0 (Version None)
Quarter: 2008Q1

REPORT INFORMATION
  Report Type: 
  Country: None (occurrence: None)
  Receive Date: 20080305
  Receipt Date: 20080227
  Transmission Date: 20080703
  Serious: Yes (Hospitalization, Other)
  Sender: FDA-Public Use
  Company Number: ES-PFIZER INC-2008017605

PATIENT
  Age: 21 Year
  Sex: Male

DRUGS (2)
  1. ZIPRASIDONE (CAPS) [Suspect]
     Indication: PSYCHOTIC DISORDER
     Route: 048
  2. LORMETAZEPAM [Concomitant]

REACTIONS (4)
  - CONDUCT DISORDER [None]
  - GAIT DISTURBANCE [None]
  - MUSCULAR WEAKNESS [None]
  - SALIVARY HYPERSECRETION [None]
